FAERS Safety Report 10029704 (Version 1)
Quarter: 2014Q1

REPORT INFORMATION
  Report Type: Spontaneous
  Country: US (occurrence: None)
  Receive Date: 20140321
  Receipt Date: 20140321
  Transmission Date: 20141002
  Serious: Yes (Disabling)
  Sender: FDA-Public Use
  Company Number: None

PATIENT
  Age: 28 Year
  Sex: Female
  Weight: 120.2 kg

DRUGS (2)
  1. CIPROFLOXACIN [Suspect]
     Indication: URINARY TRACT INFECTION
     Dosage: 1 PILL
     Route: 048
     Dates: start: 20140312, end: 20140319
  2. CIPROFLOXACIN [Suspect]
     Indication: KIDNEY INFECTION
     Dosage: 1 PILL
     Route: 048
     Dates: start: 20140312, end: 20140319

REACTIONS (5)
  - Back pain [None]
  - Pain in extremity [None]
  - Myalgia [None]
  - Hypoaesthesia [None]
  - Paraesthesia [None]
